FAERS Safety Report 8062684-9 (Version None)
Quarter: 2011Q4

REPORT INFORMATION
  Report Type: 
  Country: None (occurrence: None)
  Receive Date: 20111220
  Receipt Date: 20110510
  Transmission Date: 20120403
  Serious: Yes (Hospitalization)
  Sender: FDA-Public Use
  Company Number: PHHY2011US40945

PATIENT
  Age: 21 Year
  Sex: Female

DRUGS (9)
  1. FLUTICASONE PROPIONATE [Concomitant]
  2. RANITIDINE HYDROCHLORIDE [Concomitant]
  3. PULMOZYME [Concomitant]
  4. ACYCLOVIR [Concomitant]
  5. AZITHROMYCIN [Concomitant]
  6. PREDNISONE TAB [Concomitant]
  7. TACROLIMUS [Concomitant]
  8. MYCOPHENOLIC ACID [Suspect]
  9. SULFAMETHOXAZOLE AND TRIMETHOPRIM [Concomitant]

REACTIONS (1)
  - PAIN [None]
